FAERS Safety Report 7432901-4 (Version None)
Quarter: 2011Q2

REPORT INFORMATION
  Report Type: 
  Country: None (occurrence: None)
  Receive Date: 20110422
  Receipt Date: 20110401
  Transmission Date: 20111010
  Serious: Yes (Hospitalization, Other)
  Sender: FDA-Public Use
  Company Number: ZA-JNJFOC-20110205612

PATIENT
  Age: 76 Year
  Sex: Male
  Weight: 67 kg

DRUGS (13)
  1. GOLIMUMAB [Suspect]
     Route: 058
  2. BILOCOR [Concomitant]
     Indication: HYPERTENSION
  3. METHOTREXATE [Concomitant]
     Indication: RHEUMATOID ARTHRITIS
  4. PREDNISONE [Concomitant]
     Indication: RHEUMATOID ARTHRITIS
  5. METHOTREXATE [Concomitant]
  6. ASPIRIN [Concomitant]
     Indication: HYPERTENSION
  7. FOLIC ACID [Concomitant]
     Indication: RHEUMATOID ARTHRITIS
  8. COXFLAM [Concomitant]
     Indication: RHEUMATOID ARTHRITIS
     Route: 048
  9. LIPOGEN [Concomitant]
     Indication: HYPERCHOLESTEROLAEMIA
     Route: 048
  10. GOLIMUMAB [Suspect]
     Indication: RHEUMATOID ARTHRITIS
     Route: 058
  11. ASPIRIN AND DIPYRIDAMOLE [Concomitant]
     Indication: HYPERTENSION
  12. HERBAL PREPARATION [Concomitant]
     Indication: HYPERCHOLESTEROLAEMIA
  13. SULFASALAZINE [Concomitant]
     Indication: RHEUMATOID ARTHRITIS

REACTIONS (2)
  - URINARY TRACT INFECTION [None]
  - DEMYELINATING POLYNEUROPATHY [None]
